FAERS Safety Report 4288351-5 (Version None)
Quarter: 2004Q1

REPORT INFORMATION
  Report Type: 
  Country: None (occurrence: None)
  Receive Date: 20040205
  Receipt Date: 20040129
  Transmission Date: 20041129
  Serious: Yes (Hospitalization, Other)
  Sender: FDA-Public Use
  Company Number: FRWYE542929JAN04

PATIENT
  Age: 25 Year
  Sex: Male

DRUGS (2)
  1. EFFEXOR [Suspect]
     Dosage: 50 MG 80X PER 1 DAY
     Route: 048
     Dates: start: 20031221, end: 20031221
  2. ALCOHOL  (ETHANOL) [Suspect]
     Route: 048
     Dates: start: 20031221, end: 20031221

REACTIONS (4)
  - ALCOHOL USE [None]
  - BUNDLE BRANCH BLOCK RIGHT [None]
  - INTENTIONAL OVERDOSE [None]
  - SINUS TACHYCARDIA [None]
